FAERS Safety Report 7242124-X (Version None)
Quarter: 2011Q1

REPORT INFORMATION
  Report Type: 
  Country: None (occurrence: None)
  Receive Date: 20110124
  Receipt Date: 20101109
  Transmission Date: 20110831
  Serious: Yes (Hospitalization)
  Sender: FDA-Public Use
  Company Number: US-AMGEN-USASP2010004716

PATIENT
  Age: 66 Year
  Sex: Male

DRUGS (2)
  1. ENBREL [Suspect]
     Indication: PSORIASIS
  2. ENBREL [Suspect]
     Indication: PSORIATIC ARTHROPATHY
     Dosage: 50 MG, 2 TIMES/WK
     Dates: start: 20100901, end: 20101007

REACTIONS (7)
  - DIABETIC COMA [None]
  - DIZZINESS [None]
  - ATRIAL FLUTTER [None]
  - BALANCE DISORDER [None]
  - PSORIASIS [None]
  - BLOOD GLUCOSE DECREASED [None]
  - ARTHRITIS [None]
